FAERS Safety Report 4766659-4 (Version None)
Quarter: 2005Q3

REPORT INFORMATION
  Report Type: 
  Country: None (occurrence: None)
  Receive Date: 20050908
  Receipt Date: 20050901
  Transmission Date: 20060218
  Serious: Yes (Hospitalization)
  Sender: FDA-Public Use
  Company Number: 2005122285

PATIENT
  Sex: Female

DRUGS (1)
  1. ZYVOX [Suspect]
     Indication: PNEUMONIA STAPHYLOCOCCAL
     Dosage: 600 MG (600 MG, 1 IN 24 HR), ORAL
     Route: 048

REACTIONS (2)
  - EPISTAXIS [None]
  - HAEMOGLOBIN ABNORMAL [None]
